FAERS Safety Report 4670269-7 (Version None)
Quarter: 2005Q2

REPORT INFORMATION
  Report Type: 
  Country: None (occurrence: None)
  Receive Date: 20050520
  Receipt Date: 20050506
  Transmission Date: 20051028
  Serious: Yes (Other)
  Sender: FDA-Public Use
  Company Number: 2005070933

PATIENT
  Age: 79 Year
  Sex: Female
  Weight: 70.3075 kg

DRUGS (4)
  1. UNISOM [Suspect]
     Indication: INSOMNIA
     Dosage: 1/2 TAB 3-4 TIMES PER WEEK, ORAL
     Route: 048
     Dates: start: 20050101
  2. ATENOLOL [Concomitant]
  3. LOTREL [Concomitant]
  4. ASPIRIN [Concomitant]

REACTIONS (1)
  - DRUG DEPENDENCE [None]
